FAERS Safety Report 11766438 (Version 2)
Quarter: 2015Q4

REPORT INFORMATION
  Report Type: Spontaneous
  Country: CA (occurrence: CA)
  Receive Date: 20151123
  Receipt Date: 20151214
  Transmission Date: 20160304
  Serious: Yes (Hospitalization)
  Sender: FDA-Public Use
  Company Number: CA-ROCHE-1664440

PATIENT
  Age: 48 Year
  Sex: Female

DRUGS (5)
  1. SPIRIVA [Concomitant]
     Active Substance: TIOTROPIUM BROMIDE MONOHYDRATE
     Dosage: 2 PUFFS AT BEDTIME
     Route: 065
     Dates: start: 20150901
  2. SYMBICORT [Concomitant]
     Active Substance: BUDESONIDE\FORMOTEROL FUMARATE DIHYDRATE
  3. XOLAIR [Suspect]
     Active Substance: OMALIZUMAB
     Indication: ASTHMA
     Route: 058
     Dates: start: 20110310
  4. VENTOLIN [Concomitant]
     Active Substance: ALBUTEROL SULFATE
  5. PREDNISONE. [Concomitant]
     Active Substance: PREDNISONE

REACTIONS (14)
  - Increased bronchial secretion [Unknown]
  - Dyspnoea [Unknown]
  - Malaise [Recovering/Resolving]
  - Burning sensation [Recovering/Resolving]
  - Sinusitis [Unknown]
  - Rhinitis [Unknown]
  - Pyrexia [Recovered/Resolved]
  - Migraine [Unknown]
  - Back pain [Recovering/Resolving]
  - Nausea [Unknown]
  - Asthma [Unknown]
  - Infection [Unknown]
  - Arthritis [Recovering/Resolving]
  - Rales [Unknown]

NARRATIVE: CASE EVENT DATE: 201411
